FAERS Safety Report 7802135-X (Version None)
Quarter: 2011Q4

REPORT INFORMATION
  Report Type: 
  Country: None (occurrence: None)
  Receive Date: 20111007
  Receipt Date: 20111007
  Transmission Date: 20120403
  Serious: Yes (Hospitalization)
  Sender: FDA-Public Use
  Company Number: FR-PFIZER INC-2011009392

PATIENT
  Age: 89 Year
  Sex: Female

DRUGS (12)
  1. RAMIPRIL [Suspect]
     Indication: HYPERTENSION
     Dosage: UNK
     Route: 048
     Dates: end: 20101207
  2. LASIX [Suspect]
     Indication: HYPERTENSION
     Route: 048
  3. CELLUVISC [Concomitant]
  4. VIALEBEX [Suspect]
     Indication: HYPOALBUMINAEMIA
     Dosage: UNK
     Route: 042
     Dates: start: 20101208, end: 20101209
  5. AMLODIPINE BESYLATE [Suspect]
     Indication: HYPERTENSION
     Dosage: 10 MG, 1X/DAY
     Route: 048
     Dates: start: 20101118, end: 20101207
  6. ESCITALOPRAM [Concomitant]
  7. REFRESH [Concomitant]
  8. BETAHISTINE [Concomitant]
  9. NEBIVOLOL HCL [Suspect]
     Indication: HYPERTENSION
     Dosage: 5 MG
     Route: 048
  10. PRESERVISION SOFTGELS WITH LUTEIN [Concomitant]
  11. COSOPT [Concomitant]
  12. VASTAREL [Concomitant]

REACTIONS (4)
  - OEDEMA PERIPHERAL [None]
  - CARDIAC FAILURE [None]
  - VASCULAR PURPURA [None]
  - INFECTION [None]
